FAERS Safety Report 25659766 (Version 1)
Quarter: 2025Q3

REPORT INFORMATION
  Report Type: Spontaneous
  Country: KR (occurrence: KR)
  Receive Date: 20250808
  Receipt Date: 20250808
  Transmission Date: 20251021
  Serious: Yes (Other)
  Sender: REGENERON
  Company Number: KR-BAYER-2025A104381

PATIENT
  Age: 74 Year
  Sex: Male

DRUGS (2)
  1. EYLEA [Suspect]
     Active Substance: AFLIBERCEPT
     Indication: Polypoidal choroidal vasculopathy
  2. EYLEA [Suspect]
     Active Substance: AFLIBERCEPT

REACTIONS (2)
  - Fluid retention [Unknown]
  - Incorrect product administration duration [Unknown]
